FAERS Safety Report 9161996 (Version 1)
Quarter: 2013Q1

REPORT INFORMATION
  Report Type: Spontaneous
  Country: PT (occurrence: None)
  Receive Date: 20130220
  Receipt Date: 20130220
  Transmission Date: 20140127
  Serious: Yes (Life-Threatening, Hospitalization, Other)
  Sender: FDA-Public Use
  Company Number: 2013P1002135

PATIENT
  Age: 41 Year
  Sex: Female

DRUGS (2)
  1. VALPROATE SODIUM [Suspect]
     Indication: MANIA
  2. RISPERIDONE [Suspect]
     Indication: MANIA

REACTIONS (8)
  - Aspartate aminotransferase increased [None]
  - Dysarthria [None]
  - Ataxia [None]
  - Hyperammonaemic encephalopathy [None]
  - Drug interaction [None]
  - Psychomotor retardation [None]
  - Alanine aminotransferase increased [None]
  - Blood folate decreased [None]
